FAERS Safety Report 15241370 (Version 1)
Quarter: 2018Q3

REPORT INFORMATION
  Report Type: Spontaneous
  Country: FI (occurrence: FI)
  Receive Date: 20180805
  Receipt Date: 20180805
  Transmission Date: 20181010
  Serious: Yes (Other)
  Sender: FDA-Public Use
  Company Number: FI-CONCORDIA PHARMACEUTICALS INC.-E2B_00015303

PATIENT
  Age: 67 Year
  Sex: Male

DRUGS (8)
  1. PREDNISOLONE. [Suspect]
     Active Substance: PREDNISOLONE
     Indication: MYALGIA
  2. PREDNISOLONE. [Suspect]
     Active Substance: PREDNISOLONE
     Indication: HYPOKINESIA
  3. PREDNISOLONE. [Suspect]
     Active Substance: PREDNISOLONE
     Indication: MUSCLE DISORDER
  4. PREDNISOLONE. [Suspect]
     Active Substance: PREDNISOLONE
     Indication: INJECTION SITE PAIN
  5. HIZENTRA [Suspect]
     Active Substance: HUMAN IMMUNOGLOBULIN G
     Dosage: UNK
     Dates: start: 201604
  6. HIZENTRA [Suspect]
     Active Substance: HUMAN IMMUNOGLOBULIN G
     Indication: CONNECTIVE TISSUE DISORDER
     Dosage: 4 AMPOULES, QW
  7. HIZENTRA [Suspect]
     Active Substance: HUMAN IMMUNOGLOBULIN G
     Dosage: 4 AMPOULES, QW
     Dates: start: 201807
  8. PREDNISOLONE. [Suspect]
     Active Substance: PREDNISOLONE
     Indication: ARTHRALGIA
     Dosage: UNK
     Dates: start: 2018

REACTIONS (8)
  - Drug ineffective for unapproved indication [Unknown]
  - Muscle disorder [Recovering/Resolving]
  - Injection site pain [Recovered/Resolved]
  - Insomnia [Unknown]
  - Hypokinesia [Recovering/Resolving]
  - Myalgia [Recovering/Resolving]
  - Arthralgia [Recovering/Resolving]
  - Connective tissue disorder [Recovering/Resolving]

NARRATIVE: CASE EVENT DATE: 2018
